FAERS Safety Report 23100774 (Version 1)
Quarter: 2023Q4

REPORT INFORMATION
  Report Type: Spontaneous
  Country: US (occurrence: US)
  Receive Date: 20231024
  Receipt Date: 20231024
  Transmission Date: 20240109
  Serious: Yes (Other)
  Sender: FDA-Public Use
  Company Number: US-AMGEN-USASP2023187211

PATIENT
  Age: 47 Year
  Sex: Female

DRUGS (2)
  1. TAVNEOS [Suspect]
     Active Substance: AVACOPAN
     Indication: Granulomatosis with polyangiitis
     Dosage: 30 MILLIGRAM, BID (TAKE 3 CAPSULES (30 MG) BY MOUTH TWICE DAILY)
     Route: 048
     Dates: start: 20230811
  2. TAVNEOS [Suspect]
     Active Substance: AVACOPAN
     Dosage: UNK UNK, QD (LESS THAN SIX CAPSULES DAILY)
     Route: 048

REACTIONS (3)
  - Foot fracture [Unknown]
  - Sinusitis [Unknown]
  - Bronchitis [Unknown]

NARRATIVE: CASE EVENT DATE: 20230101
